FAERS Safety Report 12289018 (Version 5)
Quarter: 2019Q2

REPORT INFORMATION
  Report Type: Spontaneous
  Country: BR (occurrence: BR)
  Receive Date: 20160421
  Receipt Date: 20190405
  Transmission Date: 20190711
  Serious: Yes (Other)
  Sender: FDA-Public Use
  Company Number: BR-ROCHE-1342878

PATIENT
  Sex: Female
  Weight: 56 kg

DRUGS (8)
  1. PROLOPA BD [Suspect]
     Active Substance: BENSERAZIDE\LEVODOPA
     Indication: PARKINSON^S DISEASE
     Dosage: HALF A TABLET OF 125 MG, 3 TIMES A DAY
     Route: 065
     Dates: start: 20140128
  2. RIVOTRIL [Suspect]
     Active Substance: CLONAZEPAM
     Indication: PRODUCT USED FOR UNKNOWN INDICATION
     Dosage: HALF A TABLET IN THE MORNING AND AT NIGHT AS REQUIRED
     Route: 048
  3. PROLOPA BD [Suspect]
     Active Substance: BENSERAZIDE\LEVODOPA
     Route: 048
     Dates: start: 201403
  4. PROLOPA BD [Suspect]
     Active Substance: BENSERAZIDE\LEVODOPA
     Dosage: 100/25
     Route: 048
     Dates: start: 2013
  5. PROLOPA BD [Suspect]
     Active Substance: BENSERAZIDE\LEVODOPA
     Dosage: AT 5AM, 11AM AND 5PM
     Route: 048
  6. PROLOPA HBS [Suspect]
     Active Substance: BENSERAZIDE\LEVODOPA
     Indication: PARKINSON^S DISEASE
     Dosage: AT 9PM
     Route: 065
  7. SELEGILINE [Concomitant]
     Active Substance: SELEGILINE
  8. RASAGILINE. [Concomitant]
     Active Substance: RASAGILINE

REACTIONS (40)
  - Arrhythmia [Not Recovered/Not Resolved]
  - Thyroid disorder [Not Recovered/Not Resolved]
  - Malaise [Not Recovered/Not Resolved]
  - Lacrimation increased [Not Recovered/Not Resolved]
  - Gastrointestinal hypomotility [Not Recovered/Not Resolved]
  - Irritability [Not Recovered/Not Resolved]
  - Arthralgia [Not Recovered/Not Resolved]
  - Gait disturbance [Not Recovered/Not Resolved]
  - Infrequent bowel movements [Unknown]
  - Intervertebral disc protrusion [Not Recovered/Not Resolved]
  - Dysentery [Recovered/Resolved]
  - Constipation [Recovering/Resolving]
  - Labyrinthitis [Not Recovered/Not Resolved]
  - Eye irritation [Not Recovered/Not Resolved]
  - Dry mouth [Not Recovered/Not Resolved]
  - Blood pressure fluctuation [Not Recovered/Not Resolved]
  - Weight decreased [Not Recovered/Not Resolved]
  - Alopecia [Not Recovered/Not Resolved]
  - Tremor [Not Recovered/Not Resolved]
  - Dyspnoea [Unknown]
  - Confusional state [Not Recovered/Not Resolved]
  - Bursitis [Unknown]
  - Tendonitis [Unknown]
  - Dizziness [Not Recovered/Not Resolved]
  - Pain [Not Recovered/Not Resolved]
  - Tachycardia [Not Recovered/Not Resolved]
  - Asthenia [Not Recovered/Not Resolved]
  - Arthritis [Not Recovered/Not Resolved]
  - Nervousness [Unknown]
  - Anxiety [Not Recovered/Not Resolved]
  - Pruritus [Not Recovered/Not Resolved]
  - Tinnitus [Not Recovered/Not Resolved]
  - Balance disorder [Unknown]
  - Insomnia [Recovering/Resolving]
  - Nausea [Not Recovered/Not Resolved]
  - Osteoarthritis [Not Recovered/Not Resolved]
  - Drug ineffective [Unknown]
  - Cataract [Not Recovered/Not Resolved]
  - Ill-defined disorder [Unknown]
  - Heart rate increased [Unknown]
